FAERS Safety Report 11339651 (Version 1)
Quarter: 2015Q3

REPORT INFORMATION
  Report Type: Spontaneous
  Country: GB (occurrence: GB)
  Receive Date: 20150805
  Receipt Date: 20150805
  Transmission Date: 20151125
  Serious: Yes (Life-Threatening, Hospitalization, Other)
  Sender: FDA-Public Use
  Company Number: GB-ACCORD-032570

PATIENT
  Age: 65 Year
  Sex: Male
  Weight: 89 kg

DRUGS (7)
  1. FOLIC ACID. [Concomitant]
     Active Substance: FOLIC ACID
     Dosage: ON MONDAY
     Dates: start: 20140407, end: 20150713
  2. SALBUTAMOL [Concomitant]
     Active Substance: ALBUTEROL
     Dosage: ONE TO TWO PUFFS UP TO FOUR TIMES A DAY ...
     Route: 055
     Dates: start: 20140506
  3. PREDNISOLONE. [Concomitant]
     Active Substance: PREDNISOLONE
     Dosage: USE AS DIRECTED
     Dates: start: 20140407
  4. ACCRETE D3 [Concomitant]
     Indication: BONE DISORDER
     Dosage: TAKE 1 TABLET TWICE DAILY TO HELP PREVENT BON...
     Dates: start: 20140407
  5. DOXYCYCLINE. [Concomitant]
     Active Substance: DOXYCYCLINE
     Dosage: TWO TO BE TAKEN ^ON THE 1ST DAY THEN ONE TO BE
     Dates: start: 20150522, end: 20150529
  6. METHOTREXATE [Suspect]
     Active Substance: METHOTREXATE
     Indication: PRODUCT USED FOR UNKNOWN INDICATION
     Dates: start: 20140407
  7. NAPROXEN. [Concomitant]
     Active Substance: NAPROXEN
     Dates: start: 20140407

REACTIONS (3)
  - Campylobacter gastroenteritis [Recovering/Resolving]
  - Bone marrow failure [Recovering/Resolving]
  - Acute kidney injury [Recovering/Resolving]

NARRATIVE: CASE EVENT DATE: 20150713
